FAERS Safety Report 24564053 (Version 2)
Quarter: 2025Q1

REPORT INFORMATION
  Report Type: Report from Study
  Country: US (occurrence: US)
  Receive Date: 20241030
  Receipt Date: 20250102
  Transmission Date: 20250409
  Serious: Yes (Other)
  Sender: NOVARTIS
  Company Number: US-002147023-NVSC2024US208860

PATIENT
  Age: 60 Year
  Sex: Male

DRUGS (1)
  1. KESIMPTA [Suspect]
     Active Substance: OFATUMUMAB
     Indication: Multiple sclerosis
     Route: 065
     Dates: start: 20241021

REACTIONS (3)
  - Chills [Unknown]
  - Pyrexia [Unknown]
  - Insomnia [Unknown]

NARRATIVE: CASE EVENT DATE: 20241021
